FAERS Safety Report 18530700 (Version 2)
Quarter: 2020Q4

REPORT INFORMATION
  Report Type: Spontaneous
  Country: HR (occurrence: HR)
  Receive Date: 20201121
  Receipt Date: 20201203
  Transmission Date: 20210114
  Serious: Yes (Other)
  Sender: FDA-Public Use
  Company Number: NVSC2020HR269938

PATIENT
  Sex: Male

DRUGS (6)
  1. BEOVU [Suspect]
     Active Substance: BROLUCIZUMAB-DBLL
     Indication: ANGIOPATHY
     Dosage: UNK
     Route: 065
     Dates: start: 202006
  2. EYLIA [Suspect]
     Active Substance: AFLIBERCEPT
     Dosage: UNK
     Route: 065
     Dates: start: 202001
  3. LUCENTIS [Suspect]
     Active Substance: RANIBIZUMAB
     Indication: ANGIOPATHY
     Dosage: UNK
     Route: 065
     Dates: start: 201911
  4. LUCENTIS [Suspect]
     Active Substance: RANIBIZUMAB
     Dosage: UNK
     Route: 065
     Dates: start: 202005
  5. AVASTIN [Suspect]
     Active Substance: BEVACIZUMAB
     Indication: ANGIOPATHY
     Dosage: UNK
     Route: 065
  6. EYLIA [Suspect]
     Active Substance: AFLIBERCEPT
     Indication: ANGIOPATHY
     Dosage: UNK
     Route: 065
     Dates: start: 201907

REACTIONS (1)
  - Detachment of retinal pigment epithelium [Unknown]
